FAERS Safety Report 7419913-1 (Version None)
Quarter: 2011Q2

REPORT INFORMATION
  Report Type: 
  Country: None (occurrence: None)
  Receive Date: 20110418
  Receipt Date: 20110408
  Transmission Date: 20111010
  Serious: Yes (Other)
  Sender: FDA-Public Use
  Company Number: AR-AMGEN-ARGSP2011016909

PATIENT
  Age: 73 Year
  Sex: Female

DRUGS (5)
  1. ENBREL [Suspect]
     Dosage: 50 MG, WEEKLY
     Dates: start: 20100101
  2. ENBREL [Suspect]
     Indication: RHEUMATOID ARTHRITIS
     Dosage: 25 MG, 2X/WEEK
     Dates: start: 20020101, end: 20100101
  3. NAPROXEN [Concomitant]
     Dosage: UNK
     Route: 048
  4. MEPREDNISONE [Concomitant]
     Dosage: UNK
     Route: 048
  5. CLONAZEPAM [Concomitant]
     Dosage: UNK
     Route: 048

REACTIONS (5)
  - GAIT DISTURBANCE [None]
  - FEELING ABNORMAL [None]
  - DRUG INEFFECTIVE [None]
  - PANIC ATTACK [None]
  - ARTHRALGIA [None]
